FAERS Safety Report 10119925 (Version 4)
Quarter: 2014Q2

REPORT INFORMATION
  Report Type: Spontaneous
  Country: CA (occurrence: CA)
  Receive Date: 20140425
  Receipt Date: 20140519
  Transmission Date: 20141212
  Serious: Yes (Other)
  Sender: FDA-Public Use
  Company Number: CA-PFIZER INC-2014111304

PATIENT
  Age: 69 Year
  Sex: Male
  Weight: 87.5 kg

DRUGS (5)
  1. CADUET [Suspect]
     Indication: BLOOD CHOLESTEROL INCREASED
     Dosage: 5 MG/10 MG, 1X/DAY
     Route: 048
     Dates: start: 20140408, end: 20140415
  2. CADUET [Suspect]
     Indication: HYPERTENSION
  3. METFORMIN [Concomitant]
     Indication: DIABETES MELLITUS
     Dosage: 1000 MG, 2X/DAY
     Route: 048
  4. DIAMICRON MR [Concomitant]
     Indication: DIABETES MELLITUS
     Dosage: 90 MG (30 MG X3), 1X/DAY
     Route: 048
  5. EC ASA [Concomitant]
     Indication: CARDIOVASCULAR EVENT PROPHYLAXIS
     Dosage: 81 MG, 1X/DAY
     Route: 048

REACTIONS (5)
  - Hypertension [Recovered/Resolved]
  - Heart rate increased [Recovered/Resolved]
  - Dizziness [Recovered/Resolved]
  - Photopsia [Recovered/Resolved]
  - Abdominal discomfort [Recovered/Resolved]
